FAERS Safety Report 13739224 (Version 1)
Quarter: 2017Q3

REPORT INFORMATION
  Report Type: Report from Study
  Country: US (occurrence: US)
  Receive Date: 20170710
  Receipt Date: 20170710
  Transmission Date: 20171127
  Serious: Yes (Hospitalization)
  Sender: FDA-Public Use
  Company Number: US-ACTELION-A-US2017-156163

PATIENT
  Age: 3 Year
  Sex: Male

DRUGS (6)
  1. ASPIRIN. [Concomitant]
     Active Substance: ASPIRIN
     Dosage: 81 MG, UNK
  2. FUROSEMIDE. [Concomitant]
     Active Substance: FUROSEMIDE
     Dosage: 15 MG, QD
  3. GENERLAC [Concomitant]
     Active Substance: LACTULOSE
     Dosage: 6.7 MG, QD
  4. RANITIDINE. [Concomitant]
     Active Substance: RANITIDINE
     Dosage: 36 MG, BID
  5. TRACLEER [Suspect]
     Active Substance: BOSENTAN
     Indication: PULMONARY ARTERIAL HYPERTENSION
     Dosage: 31.25 MG, BID
     Route: 048
     Dates: start: 20170508, end: 20170611
  6. TADALAFIL [Concomitant]
     Active Substance: TADALAFIL
     Dosage: 15 MG, QD

REACTIONS (6)
  - Flushing [Unknown]
  - Pyrexia [Unknown]
  - Cholecystitis [Unknown]
  - Miliaria [Unknown]
  - Vomiting [Unknown]
  - Abdominal pain [Unknown]

NARRATIVE: CASE EVENT DATE: 20170611
